FAERS Safety Report 19651940 (Version 1)
Quarter: 2021Q3

REPORT INFORMATION
  Report Type: Report from Study
  Country: IL (occurrence: IL)
  Receive Date: 20210803
  Receipt Date: 20210803
  Transmission Date: 20211014
  Serious: Yes (Other)
  Sender: FDA-Public Use
  Company Number: IL-GILEAD-2021-0542680

PATIENT
  Age: 28 Year
  Sex: Female

DRUGS (1)
  1. AXICABTAGENE CILOLEUCEL [Suspect]
     Active Substance: AXICABTAGENE CILOLEUCEL
     Indication: PRODUCT USED FOR UNKNOWN INDICATION
     Route: 042

REACTIONS (9)
  - Cell-mediated immune deficiency [Unknown]
  - Cytokine storm [Unknown]
  - Grip strength decreased [Unknown]
  - Back pain [Unknown]
  - Pyrexia [Unknown]
  - Disorientation [Unknown]
  - Aphasia [Unknown]
  - Osteoporosis [Unknown]
  - Arthralgia [Unknown]
